FAERS Safety Report 7033686-6 (Version None)
Quarter: 2010Q4

REPORT INFORMATION
  Report Type: 
  Country: None (occurrence: None)
  Receive Date: 20101007
  Receipt Date: 20100927
  Transmission Date: 20110411
  Serious: Yes (Other)
  Sender: FDA-Public Use
  Company Number: GXKR2010TR10893

PATIENT
  Age: 46 Year
  Sex: Male

DRUGS (2)
  1. PREDNISOLONE (NGX) [Suspect]
     Dosage: UNK
     Route: 048
  2. CORTICOSTEROIDS [Suspect]
     Indication: OPTIC NEURITIS
     Dosage: UNK
     Route: 065

REACTIONS (5)
  - BLINDNESS [None]
  - CHORIORETINOPATHY [None]
  - RETINAL DETACHMENT [None]
  - RETINAL LASER COAGULATION [None]
  - SCOTOMA [None]
